FAERS Safety Report 4882472-1 (Version None)
Quarter: 2006Q1

REPORT INFORMATION
  Report Type: 
  Country: None (occurrence: None)
  Receive Date: 20060117
  Receipt Date: 20060106
  Transmission Date: 20060701
  Serious: Yes (Death, Hospitalization)
  Sender: FDA-Public Use
  Company Number: FR-ABBOTT-06P-056-0321429-00

PATIENT
  Age: 50 Year
  Sex: Female

DRUGS (4)
  1. DEPAKOTE [Suspect]
     Indication: INTENTIONAL OVERDOSE
     Route: 048
     Dates: start: 20051110, end: 20051110
  2. AMITRIPTYLINE HCL [Suspect]
     Indication: INTENTIONAL OVERDOSE
     Route: 048
     Dates: start: 20051110, end: 20051110
  3. CYAMEMAZINE [Concomitant]
     Indication: INTENTIONAL OVERDOSE
     Route: 048
     Dates: start: 20051110, end: 20051110
  4. RISPERIDONE [Concomitant]
     Indication: INTENTIONAL OVERDOSE
     Dates: start: 20051110, end: 20051110

REACTIONS (15)
  - ACUTE RESPIRATORY DISTRESS SYNDROME [None]
  - ANAEMIA [None]
  - ANOXIC ENCEPHALOPATHY [None]
  - BONE MARROW DISORDER [None]
  - CARDIO-RESPIRATORY ARREST [None]
  - COMA [None]
  - COUGH [None]
  - ELECTROCARDIOGRAM QRS COMPLEX ABNORMAL [None]
  - ELECTROCARDIOGRAM QT PROLONGED [None]
  - HYPOTENSION [None]
  - INTENTIONAL OVERDOSE [None]
  - LUNG DISORDER [None]
  - PULMONARY SEPSIS [None]
  - RENAL FAILURE [None]
  - THROMBOCYTOPENIA [None]
